FAERS Safety Report 22222162 (Version 3)
Quarter: 2023Q2

REPORT INFORMATION
  Report Type: Spontaneous
  Country: US (occurrence: US)
  Receive Date: 20230418
  Receipt Date: 20230517
  Transmission Date: 20230722
  Serious: No
  Sender: FDA-Public Use
  Company Number: US-PFIZER INC-202300148672

PATIENT
  Age: 14 Year
  Sex: Female
  Weight: 45.351 kg

DRUGS (1)
  1. GENOTROPIN [Suspect]
     Active Substance: SOMATROPIN
     Indication: Growth hormone deficiency
     Dosage: 2 MG, 1X/DAY (NIGHTLY)
     Dates: start: 202302

REACTIONS (1)
  - Product solubility abnormal [Unknown]

NARRATIVE: CASE EVENT DATE: 20230101
